FAERS Safety Report 14538578 (Version 2)
Quarter: 2019Q1

REPORT INFORMATION
  Report Type: Spontaneous
  Country: CA (occurrence: CA)
  Receive Date: 20180216
  Receipt Date: 20190206
  Transmission Date: 20190417
  Serious: Yes (Other)
  Sender: FDA-Public Use
  Company Number: CA-BAYER-2018-029276

PATIENT

DRUGS (1)
  1. AVELOX [Suspect]
     Active Substance: MOXIFLOXACIN HYDROCHLORIDE
     Dosage: UNK
     Dates: start: 20100714

REACTIONS (14)
  - Headache [None]
  - Neuropathy peripheral [None]
  - Anxiety [None]
  - Dyspnoea [None]
  - Nervousness [None]
  - Platelet count decreased [None]
  - Paranoia [None]
  - Insomnia [None]
  - Visual impairment [None]
  - Retinal detachment [None]
  - Chest pain [None]
  - Heart rate increased [None]
  - Myalgia [None]
  - Sleep disorder [None]

NARRATIVE: CASE EVENT DATE: 20100715
